APPROVED DRUG PRODUCT: VOLTAREN
Active Ingredient: DICLOFENAC SODIUM
Strength: 25MG **Federal Register determination that product was not discontinued or withdrawn for safety or effectiveness reasons**
Dosage Form/Route: TABLET, DELAYED RELEASE;ORAL
Application: N019201 | Product #001
Applicant: NOVARTIS PHARMACEUTICALS CORP
Approved: Jul 28, 1988 | RLD: Yes | RS: No | Type: DISCN